FAERS Safety Report 9197162 (Version 1)
Quarter: 2013Q1

REPORT INFORMATION
  Report Type: Report from Study
  Country: SG (occurrence: SG)
  Receive Date: 20130328
  Receipt Date: 20130328
  Transmission Date: 20140127
  Serious: Yes (Death, Other)
  Sender: FDA-Public Use
  Company Number: SG-ROCHE-1206772

PATIENT
  Sex: 0

DRUGS (5)
  1. CAPECITABINE [Suspect]
     Indication: GASTRIC CANCER
     Dosage: DAY 1 TO DAY 14
     Route: 065
  2. DOCETAXEL [Suspect]
     Indication: GASTRIC CANCER
     Route: 065
  3. DOCETAXEL [Suspect]
     Route: 065
  4. CISPLATIN [Suspect]
     Indication: GASTRIC CANCER
     Route: 065
  5. CISPLATIN [Suspect]
     Route: 065

REACTIONS (5)
  - Death [Fatal]
  - Diarrhoea [Unknown]
  - Neutropenia [Unknown]
  - Stomatitis [Unknown]
  - Hypokalaemia [Unknown]
